FAERS Safety Report 10378055 (Version 2)
Quarter: 2014Q3

REPORT INFORMATION
  Report Type: Spontaneous
  Country: DE (occurrence: FR)
  Receive Date: 20140812
  Receipt Date: 20140812
  Transmission Date: 20150326
  Serious: Yes (Death)
  Sender: FDA-Public Use
  Company Number: FR-MERZ NORTH AMERICA, INC.-14MRZ-00164

PATIENT
  Age: 54 Year
  Sex: Male

DRUGS (1)
  1. AETHOXYSKLEROL [Suspect]
     Active Substance: POLIDOCANOL
     Indication: VARICOSE VEIN
     Dosage: DOSE: 2 INJECTIONS, 2 ML, FOAM
     Route: 042
     Dates: start: 20140327, end: 20140327

REACTIONS (6)
  - Syncope [None]
  - Cardiac arrest [None]
  - Ventricular tachycardia [None]
  - Coagulopathy [None]
  - Multi-organ failure [None]
  - Hepatic failure [None]

NARRATIVE: CASE EVENT DATE: 20140327
